FAERS Safety Report 4865805-1 (Version None)
Quarter: 2005Q4

REPORT INFORMATION
  Report Type: 
  Country: None (occurrence: None)
  Receive Date: 20051223
  Receipt Date: 20051212
  Transmission Date: 20060501
  Serious: Yes (Hospitalization, Other)
  Sender: FDA-Public Use
  Company Number: PHEH2005US13361

PATIENT
  Age: 84 Year
  Sex: Female

DRUGS (2)
  1. ZOMETA [Suspect]
     Indication: BREAST CANCER METASTATIC
     Dosage: UNK QMO
     Route: 042
  2. XELODA [Concomitant]

REACTIONS (7)
  - ABSCESS [None]
  - COLONOSCOPY ABNORMAL [None]
  - IMPAIRED HEALING [None]
  - MASTICATION DISORDER [None]
  - RECTAL HAEMORRHAGE [None]
  - RECTAL ULCER [None]
  - TOOTH LOSS [None]
